FAERS Safety Report 8510565-6 (Version None)
Quarter: 2012Q3

REPORT INFORMATION
  Report Type: 
  Country: None (occurrence: None)
  Receive Date: 20120716
  Receipt Date: 20120705
  Transmission Date: 20120928
  Serious: Yes (Hospitalization)
  Sender: FDA-Public Use
  Company Number: US-BIOGENIDEC-2012BI023885

PATIENT
  Age: 42 Year
  Sex: Female

DRUGS (2)
  1. AVONEX [Concomitant]
     Indication: MULTIPLE SCLEROSIS
     Route: 030
     Dates: start: 19981201
  2. TYSABRI [Suspect]
     Indication: MULTIPLE SCLEROSIS
     Route: 042
     Dates: start: 20080404

REACTIONS (6)
  - ROAD TRAFFIC ACCIDENT [None]
  - FEMUR FRACTURE [None]
  - UPPER LIMB FRACTURE [None]
  - TRAUMATIC LIVER INJURY [None]
  - SPLENIC RUPTURE [None]
  - PARAPLEGIA [None]
